FAERS Safety Report 17591240 (Version 1)
Quarter: 2020Q1

REPORT INFORMATION
  Report Type: Spontaneous
  Country: US (occurrence: US)
  Receive Date: 20200326
  Receipt Date: 20200326
  Transmission Date: 20200409
  Serious: No
  Sender: FDA-Public Use
  Company Number: None

PATIENT
  Age: 53 Year
  Sex: Female

DRUGS (1)
  1. MAVYRET [Suspect]
     Active Substance: GLECAPREVIR\PIBRENTASVIR
     Dosage: ?          OTHER DOSE:COMBINATION;?
     Route: 048
     Dates: start: 202002

REACTIONS (3)
  - Headache [None]
  - Neck pain [None]
  - Tinnitus [None]

NARRATIVE: CASE EVENT DATE: 20200326
